FAERS Safety Report 11703345 (Version 1)
Quarter: 2015Q4

REPORT INFORMATION
  Report Type: Spontaneous
  Country: US (occurrence: US)
  Receive Date: 20151105
  Receipt Date: 20151105
  Transmission Date: 20160304
  Serious: Yes (Other)
  Sender: FDA-Public Use
  Company Number: US-INCYTE CORPORATION-2015IN005671

PATIENT
  Sex: Female

DRUGS (1)
  1. JAKAFI [Suspect]
     Active Substance: RUXOLITINIB
     Indication: MYELOFIBROSIS
     Dosage: 2 TABS, BID
     Route: 048
     Dates: start: 20150430, end: 20151030

REACTIONS (3)
  - Leukaemia [Unknown]
  - Drug ineffective [Unknown]
  - Myelofibrosis [Unknown]
